FAERS Safety Report 8417172-4 (Version None)
Quarter: 2012Q2

REPORT INFORMATION
  Report Type: 
  Country: None (occurrence: None)
  Receive Date: 20120606
  Receipt Date: 20120604
  Transmission Date: 20120825
  Serious: Yes (Hospitalization, Other)
  Sender: FDA-Public Use
  Company Number: US-PFIZER INC-2012109692

PATIENT
  Sex: Male

DRUGS (1)
  1. REVATIO [Suspect]
     Indication: PULMONARY ARTERIAL HYPERTENSION
     Dosage: 80 MG, 3X/DAY (20 MG 4 TABLETS TID)
     Dates: start: 20090129

REACTIONS (3)
  - ATRIAL SEPTAL DEFECT [None]
  - MALAISE [None]
  - CARDIAC DISORDER [None]
